FAERS Safety Report 5598859-8 (Version None)
Quarter: 2008Q1

REPORT INFORMATION
  Report Type: 
  Country: None (occurrence: None)
  Receive Date: 20080117
  Receipt Date: 20080107
  Transmission Date: 20080703
  Serious: Yes (Hospitalization)
  Sender: FDA-Public Use
  Company Number: 230228J08USA

PATIENT
  Age: 85 Year
  Sex: Male
  Weight: 68.0396 kg

DRUGS (4)
  1. REBIF [Suspect]
     Indication: MULTIPLE SCLEROSIS
     Dosage: 44 MCG, 3 IN 1 WEEKS, SUBCUTANEOUS
     Route: 058
     Dates: start: 20071108
  2. MECLIZINE [Concomitant]
  3. DARVOCET [Concomitant]
  4. TEGRETOL [Concomitant]

REACTIONS (3)
  - BLOOD POTASSIUM DECREASED [None]
  - FALL [None]
  - IMMOBILE [None]
